FAERS Safety Report 17721288 (Version 2)
Quarter: 2020Q2

REPORT INFORMATION
  Report Type: Report from Study
  Country: None (occurrence: NZ)
  Receive Date: 20200429
  Receipt Date: 20200511
  Transmission Date: 20200714
  Serious: Yes (Hospitalization)
  Sender: FDA-Public Use
  Company Number: NZ-US WORLDMEDS, LLC-USW202004-000826

PATIENT
  Age: 77 Year
  Sex: Male

DRUGS (1)
  1. APOMORPHINE HYDROCHLORIDE [Suspect]
     Active Substance: APOMORPHINE HYDROCHLORIDE
     Indication: PARKINSON^S DISEASE
     Dosage: 50MG/5MLS; 3.3MG/HR 6AM -12 MIDDAY, 2.8MG/HR FROM 12 MIDDAY TO 10PM, 1.8MG/HR 10PM-6AM AND A LOCK O
     Route: 058
     Dates: start: 20181113, end: 20200408

REACTIONS (3)
  - Abscess drainage [Unknown]
  - Injection site abscess [Recovered/Resolved]
  - Injection site inflammation [Recovered/Resolved]

NARRATIVE: CASE EVENT DATE: 20200407
